FAERS Safety Report 15132614 (Version 1)
Quarter: 2018Q3

REPORT INFORMATION
  Report Type: Spontaneous
  Country: GB (occurrence: GB)
  Receive Date: 20180712
  Receipt Date: 20180712
  Transmission Date: 20181010
  Serious: Yes (Other)
  Sender: FDA-Public Use
  Company Number: GB-AUROBINDO-AUR-APL-2018-034537

PATIENT
  Age: 59 Year
  Sex: Female
  Weight: 65.31 kg

DRUGS (1)
  1. AMOXICILLIN. [Suspect]
     Active Substance: AMOXICILLIN
     Indication: LOWER RESPIRATORY TRACT INFECTION
     Dosage: 500 MILLIGRAM
     Route: 048
     Dates: start: 20180606, end: 20180612

REACTIONS (6)
  - Rash generalised [Unknown]
  - Nervousness [Unknown]
  - Vomiting [Unknown]
  - Hypoaesthesia oral [Unknown]
  - Pruritus [Unknown]
  - Hypersensitivity [Not Recovered/Not Resolved]

NARRATIVE: CASE EVENT DATE: 20180613
